FAERS Safety Report 8539556-6 (Version None)
Quarter: 2012Q3

REPORT INFORMATION
  Report Type: 
  Country: None (occurrence: None)
  Receive Date: 20120726
  Receipt Date: 20120712
  Transmission Date: 20120928
  Serious: Yes (Other)
  Sender: FDA-Public Use
  Company Number: US-ELI_LILLY_AND_COMPANY-US201207003959

PATIENT
  Sex: Female

DRUGS (2)
  1. CYMBALTA [Suspect]
     Dosage: 60 MG, UNKNOWN
  2. CYMBALTA [Suspect]
     Indication: FIBROMYALGIA
     Dosage: 30 MG, UNKNOWN

REACTIONS (5)
  - LETHARGY [None]
  - MUSCLE TWITCHING [None]
  - LOSS OF CONSCIOUSNESS [None]
  - FORMICATION [None]
  - INTENTIONAL DRUG MISUSE [None]
